FAERS Safety Report 8514115-X (Version None)
Quarter: 2012Q2

REPORT INFORMATION
  Report Type: 
  Country: None (occurrence: None)
  Receive Date: 20120406
  Receipt Date: 20081112
  Transmission Date: 20120825
  Serious: Yes (Hospitalization, Other)
  Sender: FDA-Public Use
  Company Number: PHEH2008US10191

PATIENT
  Age: 79 Year
  Sex: Male
  Weight: 70.7 kg

DRUGS (9)
  1. TASIGNA [Suspect]
     Indication: CHRONIC MYELOID LEUKAEMIA
     Dosage: 200 MG, QD, ORAL, 400 MG, BID, 400 MG, QD, ORAL
     Route: 048
     Dates: start: 20071203
  2. ACIPHEX [Concomitant]
  3. REGLAN [Concomitant]
  4. CALCIUM CARBONATE [Concomitant]
  5. VIAGRA (SILDENAFIL CITRA [Concomitant]
  6. FISH OIL (FISH OIL) [Concomitant]
  7. LIPITOR [Concomitant]
  8. ZANTAC [Concomitant]
  9. ASCORBIC ACID [Concomitant]

REACTIONS (8)
  - HYPOTHYROIDISM [None]
  - ANAEMIA [None]
  - PLATELET COUNT DECREASED [None]
  - WHITE BLOOD CELL COUNT DECREASED [None]
  - PNEUMONIA [None]
  - ATRIAL FIBRILLATION [None]
  - CONFUSIONAL STATE [None]
  - FATIGUE [None]
